FAERS Safety Report 6259687-3 (Version None)
Quarter: 2009Q3

REPORT INFORMATION
  Report Type: 
  Country: None (occurrence: None)
  Receive Date: 20090708
  Receipt Date: 20090703
  Transmission Date: 20100115
  Serious: Yes (Hospitalization)
  Sender: FDA-Public Use
  Company Number: FR-WYE-G03982309

PATIENT
  Sex: Male

DRUGS (4)
  1. ADVIL [Suspect]
     Indication: PYREXIA
     Dosage: UNKNOWN
     Route: 048
     Dates: start: 20090403, end: 20090413
  2. ADVIL [Suspect]
     Indication: OTITIS MEDIA ACUTE
     Dosage: UNKNOWN
     Route: 048
     Dates: start: 20090418, end: 20090418
  3. ORELOX [Concomitant]
     Indication: OTITIS MEDIA ACUTE
     Dosage: UNKNOWN
     Route: 048
     Dates: start: 20090418
  4. AMOXICILLIN TRIHYDRATE [Suspect]
     Indication: TONSILLITIS
     Dosage: UNKNOWN
     Route: 048
     Dates: start: 20090403, end: 20090413

REACTIONS (8)
  - CHEILITIS [None]
  - DYSPHAGIA [None]
  - FEEDING DISORDER [None]
  - GENERAL PHYSICAL HEALTH DETERIORATION [None]
  - INFLAMMATION [None]
  - LARYNGEAL OEDEMA [None]
  - LYMPHADENOPATHY [None]
  - STEVENS-JOHNSON SYNDROME [None]
